FAERS Safety Report 21732188 (Version 1)
Quarter: 2022Q4

REPORT INFORMATION
  Report Type: Spontaneous
  Country: US (occurrence: None)
  Receive Date: 20221214
  Receipt Date: 20221214
  Transmission Date: 20230112
  Serious: No
  Sender: FDA-Public Use
  Company Number: None

PATIENT
  Sex: Male

DRUGS (1)
  1. FORTEO [Suspect]
     Active Substance: TERIPARATIDE
     Indication: Osteoporotic fracture
     Dosage: OTHER STRENGTH : 250MCG/ML;?OTHER QUANTITY : 20 MCG;?FREQUENCY : DAILY;?
     Route: 048
     Dates: start: 20211224

REACTIONS (5)
  - Drug ineffective [None]
  - Procedural pain [None]
  - Arthralgia [None]
  - Rhinorrhoea [None]
  - Secretion discharge [None]
